FAERS Safety Report 10567762 (Version 1)
Quarter: 2014Q4

REPORT INFORMATION
  Report Type: Spontaneous
  Country: US (occurrence: None)
  Receive Date: 20141104
  Receipt Date: 20141104
  Transmission Date: 20150529
  Serious: Yes (Other)
  Sender: FDA-Public Use
  Company Number: AMAG201400376

PATIENT
  Age: 58 Year
  Sex: Male
  Weight: 85.7 kg

DRUGS (7)
  1. AMLODIPINE [Concomitant]
     Active Substance: AMLODIPINE BESYLATE
  2. LANTUS INSULIN (INSULIN GLARGINE) [Concomitant]
  3. ATORVASTATIN (ATORVASTATIN CALCIUM) [Concomitant]
  4. HUMALOG [Concomitant]
     Active Substance: INSULIN LISPRO
  5. LASIX [Concomitant]
     Active Substance: FUROSEMIDE
  6. CARVEDILOL (CARVEDILOL) [Concomitant]
     Active Substance: CARVEDILOL
  7. FERAHEME [Suspect]
     Active Substance: FERUMOXYTOL NON-STOICHIOMETRIC MAGNETITE
     Indication: CHRONIC KIDNEY DISEASE
     Dosage: SINGLE
     Route: 042
     Dates: start: 20141010, end: 20141010

REACTIONS (8)
  - Depressed level of consciousness [None]
  - Confusional state [None]
  - Urinary incontinence [None]
  - Chest pain [None]
  - Unresponsive to stimuli [None]
  - Back pain [None]
  - Anaphylactic reaction [None]
  - Toxicity to various agents [None]

NARRATIVE: CASE EVENT DATE: 20141010
